FAERS Safety Report 14354921 (Version 1)
Quarter: 2018Q1

REPORT INFORMATION
  Report Type: Spontaneous
  Country: FR (occurrence: FR)
  Receive Date: 20180105
  Receipt Date: 20180105
  Transmission Date: 20180509
  Serious: Yes (Hospitalization)
  Sender: FDA-Public Use
  Company Number: FR-MERCK KGAA-2039437

PATIENT
  Age: 76 Year
  Sex: Male
  Weight: 88 kg

DRUGS (5)
  1. BUDESONIDE. [Concomitant]
     Active Substance: BUDESONIDE
  2. ENANTONE LP [Suspect]
     Active Substance: LEUPROLIDE ACETATE
     Route: 058
     Dates: start: 20170811, end: 20170811
  3. NOVOTHYROX [Suspect]
     Active Substance: LEVOTHYROXINE SODIUM
     Route: 048
     Dates: start: 20060101, end: 20170811
  4. CASODEX [Concomitant]
     Active Substance: BICALUTAMIDE
     Route: 048
     Dates: start: 20170727
  5. CETIRIZINE DI-HCL [Concomitant]

REACTIONS (1)
  - Injection site abscess [Recovered/Resolved]

NARRATIVE: CASE EVENT DATE: 201708
